FAERS Safety Report 8533747-6 (Version None)
Quarter: 2012Q3

REPORT INFORMATION
  Report Type: 
  Country: None (occurrence: None)
  Receive Date: 20120724
  Receipt Date: 20120710
  Transmission Date: 20120928
  Serious: Yes (Other)
  Sender: FDA-Public Use
  Company Number: KR-MYLANLABS-2012S1014112

PATIENT
  Age: 34 Year
  Sex: Female

DRUGS (1)
  1. CIMETIDINE [Suspect]
     Dosage: 200MG
     Route: 042

REACTIONS (3)
  - ANGIOEDEMA [None]
  - URTICARIA [None]
  - TYPE I HYPERSENSITIVITY [None]
